FAERS Safety Report 8819544 (Version 1)
Quarter: 2012Q4

REPORT INFORMATION
  Report Type: 
  Country: DE (occurrence: DE)
  Receive Date: 20120930
  Receipt Date: 20120930
  Transmission Date: 20130627
  Serious: Yes (Hospitalization)
  Sender: FDA-Public Use
  Company Number: DE-ELI_LILLY_AND_COMPANY-DE201209004226

PATIENT
  Sex: Male

DRUGS (13)
  1. CYMBALTA [Suspect]
     Indication: DIABETIC NEUROPATHY
     Dosage: UNK, unknown
     Route: 048
  2. EXENATIDE [Concomitant]
     Dosage: UNK, unknown
  3. OXYCODON [Concomitant]
     Dosage: UNK, unknown
  4. RAMIPRIL [Concomitant]
     Dosage: UNK, unknown
  5. SIMVASTATIN [Concomitant]
     Dosage: UNK, unknown
  6. MOXONIDIN [Concomitant]
     Dosage: UNK, unknown
  7. BISOPROLOL [Concomitant]
     Dosage: UNK, unknown
  8. CO-APROVEL [Concomitant]
     Dosage: UNK, unknown
  9. APROVEL [Concomitant]
     Dosage: UNK, unknown
  10. KALINOR [Concomitant]
     Dosage: UNK, unknown
  11. MCP [Concomitant]
     Dosage: UNK, unknown
  12. TORASEMID [Concomitant]
     Dosage: UNK, unknown
  13. AMLODIPINE [Concomitant]
     Dosage: UNK, unknown

REACTIONS (4)
  - Gastrointestinal disorder [Not Recovered/Not Resolved]
  - Nausea [Not Recovered/Not Resolved]
  - Vomiting [Not Recovered/Not Resolved]
  - Weight increased [Not Recovered/Not Resolved]
